FAERS Safety Report 19020172 (Version 1)
Quarter: 2021Q1

REPORT INFORMATION
  Report Type: Spontaneous
  Country: FR (occurrence: FR)
  Receive Date: 20210317
  Receipt Date: 20210317
  Transmission Date: 20210420
  Serious: Yes (Hospitalization, Other)
  Sender: FDA-Public Use
  Company Number: FR-MYLANLABS-2021M1015601

PATIENT
  Age: 44 Year
  Sex: Female

DRUGS (5)
  1. CAPECITABINE. [Suspect]
     Active Substance: CAPECITABINE
     Indication: TRIPLE NEGATIVE BREAST CANCER
     Dosage: 1000 MG PER MILLIMITRE SQUARE TWO TIMES A DAY
     Route: 065
     Dates: start: 201910
  2. CYCLOPHOSPHAMIDE. [Suspect]
     Active Substance: CYCLOPHOSPHAMIDE
     Indication: TRIPLE NEGATIVE BREAST CANCER
     Dosage: SIX CYCLES 1 HR INFUSION (CYCLE)
     Dates: start: 200903, end: 200906
  3. FLUOROURACIL. [Suspect]
     Active Substance: FLUOROURACIL
     Indication: TRIPLE NEGATIVE BREAST CANCER
     Dosage: SIX CYCLES 15 MIN INFUSION (CYCLE)
     Dates: start: 200903, end: 200906
  4. EPIRUBICIN [Suspect]
     Active Substance: EPIRUBICIN
     Indication: TRIPLE NEGATIVE BREAST CANCER
     Dosage: SIX CYCLES 15 MIN INFUSION (CYCLE)
     Dates: start: 200903, end: 200906
  5. CAPECITABINE. [Suspect]
     Active Substance: CAPECITABINE
     Dosage: TWO CYCLES
     Route: 065
     Dates: start: 201911

REACTIONS (9)
  - Hypokalaemia [Unknown]
  - Asthenia [Recovered/Resolved]
  - Neutropenia [Unknown]
  - Vomiting [Unknown]
  - Toxicity to various agents [Recovering/Resolving]
  - Abdominal pain [Unknown]
  - Palmar-plantar erythrodysaesthesia syndrome [Not Recovered/Not Resolved]
  - Nausea [Unknown]
  - Diarrhoea [Recovered/Resolved]

NARRATIVE: CASE EVENT DATE: 2009
